FAERS Safety Report 14967167 (Version 1)
Quarter: 2018Q2

REPORT INFORMATION
  Report Type: Spontaneous
  Country: RO (occurrence: RO)
  Receive Date: 20180604
  Receipt Date: 20180604
  Transmission Date: 20180711
  Serious: Yes (Life-Threatening, Hospitalization, Other)
  Sender: FDA-Public Use
  Company Number: RO-CHEPLA-C20170362

PATIENT
  Age: 58 Year
  Sex: Male

DRUGS (8)
  1. VANCOMYCIN [Concomitant]
     Active Substance: VANCOMYCIN
     Indication: ANTIBIOTIC THERAPY
  2. COLIMICYN [Concomitant]
     Active Substance: COLISTIMETHATE SODIUM
     Indication: ANTIBIOTIC THERAPY
  3. FLUCONAZOLE. [Suspect]
     Active Substance: FLUCONAZOLE
  4. IDARUBICIN [Suspect]
     Active Substance: IDARUBICIN
     Indication: ACUTE PROMYELOCYTIC LEUKAEMIA
  5. METRONIDAZOLE. [Concomitant]
     Active Substance: METRONIDAZOLE
  6. DEXAMETHASON [Concomitant]
     Active Substance: DEXAMETHASONE
     Indication: PROPHYLAXIS
  7. ALL-TRANS-RETINOIC ACID (ATRA) [Suspect]
     Active Substance: TRETINOIN
     Indication: ACUTE PROMYELOCYTIC LEUKAEMIA
  8. MEROPENEM. [Concomitant]
     Active Substance: MEROPENEM
     Indication: ANTIBIOTIC THERAPY

REACTIONS (10)
  - Acute promyelocytic leukaemia differentiation syndrome [Recovered/Resolved]
  - Pancytopenia [None]
  - Hepatocellular injury [Recovered/Resolved]
  - Histiocytosis haematophagic [None]
  - Dyspnoea [None]
  - Serum ferritin increased [None]
  - Probiotic therapy [None]
  - Leukopenia [Unknown]
  - Bone marrow failure [None]
  - Clostridium test positive [None]
